FAERS Safety Report 4665759-7 (Version None)
Quarter: 2005Q2

REPORT INFORMATION
  Report Type: 
  Country: None (occurrence: None)
  Receive Date: 20050517
  Receipt Date: 20050505
  Transmission Date: 20051028
  Serious: Yes (Hospitalization)
  Sender: FDA-Public Use
  Company Number: US-2005-006981

PATIENT
  Age: 61 Year
  Sex: Male

DRUGS (1)
  1. BETASERON [Suspect]
     Indication: MULTIPLE SCLEROSIS
     Dosage: 8MIU, EVERY 2D, SUBCUTANEOUS
     Route: 058
     Dates: start: 20020415

REACTIONS (1)
  - CELLULITIS [None]
